FAERS Safety Report 5983109-0 (Version None)
Quarter: 2008Q4

REPORT INFORMATION
  Report Type: 
  Country: None (occurrence: None)
  Receive Date: 20081208
  Receipt Date: 20081124
  Transmission Date: 20090506
  Serious: Yes (Other)
  Sender: FDA-Public Use
  Company Number: HU-TEVA-181614ISR

PATIENT
  Age: 10 Year
  Sex: Male

DRUGS (1)
  1. METHOTREXATE [Suspect]
     Indication: BONE SARCOMA
     Dosage: 12 G/M2/6 HOURS

REACTIONS (2)
  - ENCEPHALOPATHY [None]
  - LIVER INJURY [None]
